FAERS Safety Report 9560502 (Version 3)
Quarter: 2014Q2

REPORT INFORMATION
  Report Type: Spontaneous
  Country: US (occurrence: US)
  Receive Date: 20130927
  Receipt Date: 20140501
  Transmission Date: 20141212
  Serious: No
  Sender: FDA-Public Use
  Company Number: US-BIOGENIDEC-2013BI051565

PATIENT
  Age: 58 Year
  Sex: Female

DRUGS (15)
  1. TECFIDERA [Suspect]
     Indication: RELAPSING-REMITTING MULTIPLE SCLEROSIS
     Route: 048
     Dates: start: 20130422, end: 201401
  2. TECFIDERA [Suspect]
     Indication: RELAPSING-REMITTING MULTIPLE SCLEROSIS
     Route: 048
     Dates: start: 201305
  3. TECFIDERA [Suspect]
     Indication: RELAPSING-REMITTING MULTIPLE SCLEROSIS
     Route: 048
     Dates: start: 20140314
  4. PROVIGIL [Concomitant]
  5. ASPIRIN [Concomitant]
  6. OXYCODONE HCL [Concomitant]
  7. FOLIC ACID [Concomitant]
  8. TRAZODONE HCL [Concomitant]
  9. AMLODIPINE BESYLATE [Concomitant]
  10. CLONAZEPAM [Concomitant]
  11. XANAX [Concomitant]
  12. CRESTOR [Concomitant]
  13. NEXIUM [Concomitant]
  14. FENTANYL [Concomitant]
  15. MIRTAZAPINE [Concomitant]

REACTIONS (8)
  - Hypoaesthesia [Unknown]
  - Alopecia [Unknown]
  - Lyme disease [Not Recovered/Not Resolved]
  - Underdose [Not Recovered/Not Resolved]
  - Rash generalised [Unknown]
  - Diarrhoea [Unknown]
  - Flushing [Not Recovered/Not Resolved]
  - Pruritus generalised [Not Recovered/Not Resolved]
